FAERS Safety Report 7108092-6 (Version None)
Quarter: 2010Q4

REPORT INFORMATION
  Report Type: 
  Country: None (occurrence: None)
  Receive Date: 20101117
  Receipt Date: 20101103
  Transmission Date: 20110411
  Serious: No
  Sender: FDA-Public Use
  Company Number: US-B.I. PHARMACEUTICALS,INC./RIDGEFIELD-2010-BP-12333BP

PATIENT
  Age: 62 Year
  Sex: Male

DRUGS (1)
  1. MIRAPEX [Suspect]
     Indication: PARKINSON'S DISEASE
     Dosage: 2 MG
     Route: 048
     Dates: start: 20090701, end: 20101020

REACTIONS (7)
  - BACK PAIN [None]
  - DRY MOUTH [None]
  - DRY SKIN [None]
  - FAECES HARD [None]
  - INTERVERTEBRAL DISC PROTRUSION [None]
  - SKIN WRINKLING [None]
  - SOMNOLENCE [None]
